FAERS Safety Report 8116399-9 (Version None)
Quarter: 2011Q4

REPORT INFORMATION
  Report Type: 
  Country: None (occurrence: None)
  Receive Date: 20111227
  Receipt Date: 20110902
  Transmission Date: 20120403
  Serious: No
  Sender: FDA-Public Use
  Company Number: PHEH2011US03448

PATIENT
  Sex: Female

DRUGS (15)
  1. KLONOPIN (CLONAZEPAM) TABLET, 0.5 MG [Concomitant]
  2. EFFEXOR [Concomitant]
  3. METHADONE (METHADONE) TABLET, 5 MG [Concomitant]
  4. VITAMIN D (ERGOCALCIFEROL) CAPSULE, 2000  U [Concomitant]
  5. WELLBUTRIN (BUPROPION HYDROCHLORIDE) TABLET [Concomitant]
  6. COLACE (DOCUSATE SODIUM) CAPSULE, 100 MG [Concomitant]
  7. BACLOFEN (BACLOFEN) TABLET, 20 MG [Concomitant]
  8. NEURONTIN [Concomitant]
  9. VITAMIN B COMPLEX (CALCIUM PANTOTHENATE, NICOTINAMIDE, PYRIDOXINE HYDR [Concomitant]
  10. ZANAFLEX (TIZANIDINE HYDROCHLORIDE) CAPSULE, 2 MG [Concomitant]
  11. PROPRANOLOL [Concomitant]
  12. GILENYA [Suspect]
     Dosage: 0.5 MG, DAILY, ORAL
     Route: 048
  13. DETROL (TOLTERODINE L-TARTRATE) CAPSULE, 4 MG [Concomitant]
  14. TRILEPTAL [Concomitant]
  15. CALCIUM + MAGNESIUM + ZINC (CALCIUM, MAGNESIUM, ZINC) TABLET [Concomitant]

REACTIONS (3)
  - DYSKINESIA [None]
  - HYPOAESTHESIA [None]
  - MUSCLE SPASMS [None]
